FAERS Safety Report 10202420 (Version 1)
Quarter: 2014Q2

REPORT INFORMATION
  Report Type: Spontaneous
  Country: FR (occurrence: FR)
  Receive Date: 20140528
  Receipt Date: 20140528
  Transmission Date: 20141212
  Serious: Yes (Hospitalization)
  Sender: FDA-Public Use
  Company Number: FR-ASTRAZENECA-2014SE35402

PATIENT
  Age: 35 Year
  Sex: Male
  Weight: 65 kg

DRUGS (3)
  1. XEROQUEL [Suspect]
     Indication: SCHIZOPHRENIA
     Route: 048
     Dates: start: 201304
  2. METHADONE [Interacting]
     Indication: DRUG WITHDRAWAL MAINTENANCE THERAPY
     Route: 048
     Dates: start: 20140204, end: 20140206
  3. METHADONE [Interacting]
     Indication: DRUG WITHDRAWAL MAINTENANCE THERAPY
     Route: 048
     Dates: start: 20140216, end: 20140216

REACTIONS (4)
  - Drug interaction [Recovered/Resolved]
  - Dissociative disorder [Recovered/Resolved]
  - Drug effect decreased [Recovered/Resolved]
  - Off label use [Unknown]
